FAERS Safety Report 23858775 (Version 6)
Quarter: 2024Q3

REPORT INFORMATION
  Report Type: Spontaneous
  Country: BR (occurrence: BR)
  Receive Date: 20240515
  Receipt Date: 20240814
  Transmission Date: 20241017
  Serious: Yes (Other)
  Sender: SANDOZ
  Company Number: BR-002147023-NVSC2023BR165142

PATIENT
  Sex: Female

DRUGS (17)
  1. ANASTROZOLE [Suspect]
     Active Substance: ANASTROZOLE
     Indication: Product used for unknown indication
     Dosage: 1 MG, UNKNOWN
     Route: 065
  2. ANASTROZOLE [Suspect]
     Active Substance: ANASTROZOLE
     Dosage: UNK
     Route: 065
  3. FASLODEX [Suspect]
     Active Substance: FULVESTRANT
     Indication: Product used for unknown indication
     Dosage: UNK
     Route: 065
  4. KISQALI [Suspect]
     Active Substance: RIBOCICLIB
     Dosage: 200 MG
     Route: 065
  5. KISQALI [Suspect]
     Active Substance: RIBOCICLIB
     Indication: Breast cancer
     Dosage: UNK, QD (3 TABLETS)
     Route: 065
     Dates: start: 20230510
  6. KISQALI [Suspect]
     Active Substance: RIBOCICLIB
     Dosage: UNK
     Route: 065
     Dates: start: 202305
  7. KISQALI [Suspect]
     Active Substance: RIBOCICLIB
     Dosage: UNK
     Route: 065
  8. KISQALI [Suspect]
     Active Substance: RIBOCICLIB
     Dosage: UNK
     Route: 065
  9. KISQALI [Suspect]
     Active Substance: RIBOCICLIB
     Indication: Breast cancer metastatic
     Dosage: UNK
     Route: 065
     Dates: start: 202305
  10. XGEVA [Suspect]
     Active Substance: DENOSUMAB
     Indication: Product used for unknown indication
     Dosage: UNK
     Route: 065
     Dates: start: 202301
  11. XGEVA [Suspect]
     Active Substance: DENOSUMAB
     Dosage: UNK
     Route: 065
     Dates: start: 202401
  12. XGEVA [Suspect]
     Active Substance: DENOSUMAB
     Dosage: UNK, QMO (3 MONTHS)
     Route: 065
     Dates: start: 202309
  13. ZOMETA [Suspect]
     Active Substance: ZOLEDRONIC ACID
     Indication: Product used for unknown indication
     Dosage: UNK
     Route: 065
  14. AN YA [Concomitant]
     Indication: Product used for unknown indication
     Dosage: 1 MG
     Route: 065
  15. ANNITA [Concomitant]
     Active Substance: NITAZOXANIDE
     Indication: Product used for unknown indication
     Dosage: UNK
     Route: 065
  16. ANNITA [Concomitant]
     Active Substance: NITAZOXANIDE
     Dosage: UNK
     Route: 065
  17. PROLIA [Concomitant]
     Active Substance: DENOSUMAB
     Indication: Product used for unknown indication
     Dosage: UNK
     Route: 065

REACTIONS (42)
  - Metastases to bone [Unknown]
  - Cataract [Unknown]
  - White blood cell count decreased [Not Recovered/Not Resolved]
  - Neutrophil count decreased [Not Recovered/Not Resolved]
  - Skin cancer [Unknown]
  - Nocturia [Not Recovered/Not Resolved]
  - Dental discomfort [Unknown]
  - Diarrhoea [Recovered/Resolved]
  - Skin irritation [Unknown]
  - Erythema [Unknown]
  - Dry skin [Recovering/Resolving]
  - Hypersensitivity [Recovered/Resolved]
  - Irritability [Unknown]
  - Depressed mood [Unknown]
  - Drug hypersensitivity [Recovered/Resolved]
  - Headache [Recovered/Resolved]
  - Blood calcium decreased [Unknown]
  - Decreased immune responsiveness [Recovering/Resolving]
  - Weight increased [Unknown]
  - Joint lock [Recovered/Resolved]
  - Nausea [Recovered/Resolved]
  - Feeling hot [Not Recovered/Not Resolved]
  - Skin atrophy [Unknown]
  - Nodule [Unknown]
  - Pigmentation disorder [Recovering/Resolving]
  - Rash [Recovered/Resolved]
  - Pain [Not Recovered/Not Resolved]
  - Pruritus [Not Recovered/Not Resolved]
  - Dermatitis allergic [Recovered/Resolved]
  - Neutrophil count abnormal [Unknown]
  - Red blood cell count decreased [Unknown]
  - Haemoglobin decreased [Unknown]
  - Haematocrit decreased [Unknown]
  - Skin mass [Unknown]
  - Fungal infection [Unknown]
  - Protein deficiency [Unknown]
  - Bone loss [Unknown]
  - Burning sensation [Recovering/Resolving]
  - Feeling abnormal [Recovering/Resolving]
  - Dehydration [Unknown]
  - Muscle disorder [Unknown]
  - Anaemia [Unknown]

NARRATIVE: CASE EVENT DATE: 20230101
